FAERS Safety Report 5014810-3 (Version None)
Quarter: 2006Q2

REPORT INFORMATION
  Report Type: 
  Country: None (occurrence: None)
  Receive Date: 20060414
  Receipt Date: 20051223
  Transmission Date: 20061013
  Serious: No
  Sender: FDA-Public Use
  Company Number: 2005SP004521

PATIENT
  Age: 51 Year
  Sex: Female
  Weight: 61.2356 kg

DRUGS (4)
  1. LUNESTA [Suspect]
     Indication: INSOMNIA
     Dosage: 3 MG;HS;ORAL
     Route: 048
     Dates: start: 20051220, end: 20051221
  2. OXYCONTIN [Concomitant]
  3. CYMBALTA [Concomitant]
  4. DALMANE [Concomitant]

REACTIONS (6)
  - ABNORMAL BEHAVIOUR [None]
  - AGITATION [None]
  - AMNESIA [None]
  - ANXIETY [None]
  - CONFUSIONAL STATE [None]
  - DEPRESSION [None]
